FAERS Safety Report 20566609 (Version 1)
Quarter: 2022Q1

REPORT INFORMATION
  Report Type: Spontaneous
  Country: US (occurrence: None)
  Receive Date: 20220307
  Receipt Date: 20220307
  Transmission Date: 20220424
  Serious: Yes (Life-Threatening, Hospitalization, Other)
  Sender: FDA-Public Use
  Company Number: None

PATIENT
  Age: 9 Year
  Sex: Female
  Weight: 29.7 kg

DRUGS (1)
  1. CLONIDINE [Suspect]
     Active Substance: CLONIDINE
     Indication: Anxiety
     Dosage: FREQUENCY : AS NEEDED;?
     Route: 048
     Dates: start: 20220221, end: 20220221

REACTIONS (7)
  - Somnolence [None]
  - Unresponsive to stimuli [None]
  - Bradycardia [None]
  - Hypotension [None]
  - Overdose [None]
  - Product dispensing error [None]
  - Product prescribing error [None]

NARRATIVE: CASE EVENT DATE: 20220221
